FAERS Safety Report 8806242 (Version 2)
Quarter: 2013Q1

REPORT INFORMATION
  Report Type: Spontaneous
  Country: AU (occurrence: None)
  Receive Date: 20120919
  Receipt Date: 20121017
  Transmission Date: 20140127
  Serious: Yes (Other)
  Sender: FDA-Public Use
  Company Number: ACO_31974_2012

PATIENT
  Sex: Female

DRUGS (4)
  1. FAMPYRA [Suspect]
     Indication: MULTIPLE SCLEROSIS
     Route: 048
  2. BACLOFEN (BACLOFEN) [Concomitant]
  3. ZOLOFT (SERTRALINE HYDROCHLORIDE) [Concomitant]
  4. GILENYA (FINGOLIMOD HYDROCHLORIDE) [Concomitant]

REACTIONS (1)
  - Convulsion [None]
